FAERS Safety Report 6727394-6 (Version None)
Quarter: 2010Q2

REPORT INFORMATION
  Report Type: 
  Country: None (occurrence: None)
  Receive Date: 20100517
  Receipt Date: 20100505
  Transmission Date: 20101027
  Serious: Yes (Death, Hospitalization, Other)
  Sender: FDA-Public Use
  Company Number: US-BAYER-201015055BCC

PATIENT
  Age: 83 Year
  Sex: Male

DRUGS (23)
  1. ASPIRIN [Suspect]
     Indication: ANTICOAGULANT THERAPY
     Dosage: TOTAL DAILY DOSE: 81 MG  UNIT DOSE: 81 MG
     Route: 048
     Dates: start: 20071219, end: 20071225
  2. HEPARIN SODIUM [Suspect]
     Indication: TRANSIENT ISCHAEMIC ATTACK
     Route: 042
     Dates: start: 20071221, end: 20071221
  3. HEPARIN SODIUM [Suspect]
     Route: 042
     Dates: start: 20071218, end: 20071218
  4. HEPARIN SODIUM 5,000 UNITS IN DEXTROSE 5% [Suspect]
     Indication: TRANSIENT ISCHAEMIC ATTACK
     Route: 042
     Dates: start: 20071218, end: 20071218
  5. HEPARIN SODIUM 5,000 UNITS IN DEXTROSE 5% [Suspect]
     Dosage: CONTINUOUS
     Route: 042
     Dates: start: 20071222, end: 20071225
  6. WARFARIN SODIUM [Suspect]
     Indication: ANTICOAGULANT THERAPY
     Route: 048
     Dates: start: 20071221, end: 20071222
  7. WARFARIN SODIUM [Suspect]
     Route: 048
     Dates: start: 20071223, end: 20071224
  8. PLAVIX [Suspect]
     Indication: ANTICOAGULANT THERAPY
     Route: 048
     Dates: start: 20071219, end: 20071225
  9. AGGRENOX [Concomitant]
     Dates: end: 20071219
  10. CELEXA [Concomitant]
  11. GLYBURIDE [Concomitant]
  12. ALTACE [Concomitant]
  13. RESTORIL [Concomitant]
  14. NAPROSYN [Concomitant]
  15. CITALOPRAM [Concomitant]
  16. TEMAZEPAM [Concomitant]
  17. SIMVASTATIN [Concomitant]
  18. AMLODIPINE [Concomitant]
  19. RISPERDAL [Concomitant]
  20. CLONIDINE [Concomitant]
  21. HYDRALAZINE HCL [Concomitant]
  22. LUPRON [Concomitant]
  23. COUMADIN [Concomitant]
     Dates: start: 20071221

REACTIONS (8)
  - BACK PAIN [None]
  - BRADYCARDIA [None]
  - DYSPNOEA [None]
  - HAEMORRHAGE [None]
  - HYPOTENSION [None]
  - NAUSEA [None]
  - RETROPERITONEAL HAEMORRHAGE [None]
  - UNRESPONSIVE TO STIMULI [None]
